FAERS Safety Report 8050174-9 (Version None)
Quarter: 2012Q1

REPORT INFORMATION
  Report Type: 
  Country: None (occurrence: None)
  Receive Date: 20120117
  Receipt Date: 20120112
  Transmission Date: 20120608
  Serious: Yes (Other)
  Sender: FDA-Public Use
  Company Number: US-MERCK-1201USA01727

PATIENT
  Age: 69 Year
  Sex: Female

DRUGS (6)
  1. FOSAMAX [Suspect]
     Route: 048
     Dates: start: 20080101, end: 20080801
  2. FOSAMAX [Suspect]
     Route: 048
     Dates: start: 20090501, end: 20090901
  3. ALENDRONATE SODIUM [Suspect]
     Route: 065
     Dates: start: 20080101, end: 20090501
  4. FOSAMAX [Suspect]
     Route: 048
     Dates: start: 20050101, end: 20080401
  5. ALENDRONATE SODIUM [Suspect]
     Route: 065
     Dates: start: 20090901, end: 20091201
  6. ALENDRONATE SODIUM [Suspect]
     Route: 065
     Dates: start: 20090101, end: 20101201

REACTIONS (3)
  - LOW TURNOVER OSTEOPATHY [None]
  - FEMUR FRACTURE [None]
  - STRESS FRACTURE [None]
